FAERS Safety Report 14789398 (Version 2)
Quarter: 2018Q3

REPORT INFORMATION
  Report Type: Spontaneous
  Country: US (occurrence: US)
  Receive Date: 20180423
  Receipt Date: 20180816
  Transmission Date: 20181010
  Serious: Yes (Life-Threatening)
  Sender: FDA-Public Use
  Company Number: US-SUN PHARMACEUTICAL INDUSTRIES LTD-2018US-170659

PATIENT
  Age: 24 Month
  Sex: Female

DRUGS (1)
  1. ONDANSETRON [Suspect]
     Active Substance: ONDANSETRON
     Indication: PRODUCT USED FOR UNKNOWN INDICATION
     Dosage: 5?6 DISINTEGERATING TABLETS(20?24 MG)
     Route: 048

REACTIONS (3)
  - Respiratory depression [Recovering/Resolving]
  - Hypoxia [Recovering/Resolving]
  - Accidental overdose [Recovering/Resolving]
